FAERS Safety Report 7992752-9 (Version None)
Quarter: 2011Q4

REPORT INFORMATION
  Report Type: 
  Country: None (occurrence: None)
  Receive Date: 20111219
  Receipt Date: 20110912
  Transmission Date: 20120403
  Serious: No
  Sender: FDA-Public Use
  Company Number: CA-ASTRAZENECA-2011SE54726

PATIENT
  Age: 57 Year
  Sex: Female

DRUGS (2)
  1. NEXIUM [Concomitant]
  2. CRESTOR [Suspect]
     Route: 048

REACTIONS (1)
  - DYSPNOEA [None]
